FAERS Safety Report 9323539 (Version 2)
Quarter: 2013Q4

REPORT INFORMATION
  Report Type: Report from Study
  Country: JP (occurrence: JP)
  Receive Date: 20130603
  Receipt Date: 20131009
  Transmission Date: 20140711
  Serious: No
  Sender: FDA-Public Use
  Company Number: JP-SHIRE-ALL1-2013-03423

PATIENT
  Age: 83 Year
  Sex: Female

DRUGS (8)
  1. 405 (LANTHANUM CARBONATE) [Suspect]
     Indication: HYPERPHOSPHATAEMIA
     Dosage: 750 MG, UNKNOWN
     Route: 048
     Dates: start: 20090509, end: 20100210
  2. CALTAN [Suspect]
     Indication: HYPERPHOSPHATAEMIA
     Dosage: 4 G, UNKNOWN
     Route: 048
     Dates: start: 20060905, end: 20100210
  3. RENAGEL /01459901/ [Suspect]
     Indication: HYPERPHOSPHATAEMIA
     Dosage: 1500 MG, UNKNOWN
     Route: 048
     Dates: start: 20060905, end: 20100210
  4. NORVASC [Concomitant]
     Indication: PRODUCT USED FOR UNKNOWN INDICATION
     Dosage: 2.5 MG, UNKNOWN
     Route: 048
  5. BLOPRESS [Concomitant]
     Indication: PRODUCT USED FOR UNKNOWN INDICATION
     Dosage: 12 MG, UNKNOWN
     Route: 048
  6. KALIMATE [Concomitant]
     Indication: PRODUCT USED FOR UNKNOWN INDICATION
     Dosage: 10 G, UNKNOWN
     Route: 048
  7. FORSENID                           /00571901/ [Concomitant]
     Indication: PRODUCT USED FOR UNKNOWN INDICATION
     Dosage: 24 MG, UNKNOWN
     Route: 048
  8. BAYASPIRIN [Concomitant]
     Indication: PRODUCT USED FOR UNKNOWN INDICATION
     Dosage: 100 MG, UNKNOWN
     Route: 048

REACTIONS (1)
  - Hypophosphataemia [Recovering/Resolving]
